FAERS Safety Report 26091170 (Version 1)
Quarter: 2025Q4

REPORT INFORMATION
  Report Type: Spontaneous
  Country: EU (occurrence: EU)
  Receive Date: 20251126
  Receipt Date: 20251126
  Transmission Date: 20260118
  Serious: Yes (Life-Threatening, Other)
  Sender: AMGEN
  Company Number: EU-AMGEN-DEUSP2025229311

PATIENT

DRUGS (1)
  1. BEVACIZUMAB [Suspect]
     Active Substance: BEVACIZUMAB
     Indication: Ovarian epithelial cancer recurrent
     Dosage: UNK
     Route: 065

REACTIONS (14)
  - Cardio-respiratory arrest [Unknown]
  - Acute kidney injury [Unknown]
  - Urosepsis [Unknown]
  - Anastomotic leak [Unknown]
  - Gastrointestinal haemorrhage [Unknown]
  - Intestinal perforation [Unknown]
  - Hydronephrosis [Unknown]
  - Ovarian epithelial cancer recurrent [Unknown]
  - Pulmonary embolism [Unknown]
  - Pleural effusion [Unknown]
  - Urinary tract infection [Unknown]
  - Impaired healing [Unknown]
  - Infection [Unknown]
  - Therapeutic product effect incomplete [Unknown]
